FAERS Safety Report 15586593 (Version 3)
Quarter: 2022Q1

REPORT INFORMATION
  Report Type: Spontaneous
  Country: US (occurrence: US)
  Receive Date: 20181105
  Receipt Date: 20220212
  Transmission Date: 20220423
  Serious: No
  Sender: FDA-Public Use
  Company Number: US-BIOGEN-2018BI00654546

PATIENT
  Sex: Female

DRUGS (3)
  1. TECFIDERA [Suspect]
     Active Substance: DIMETHYL FUMARATE
     Indication: Multiple sclerosis
     Dosage: MAINTENANCE DOSE
     Route: 050
  2. TECFIDERA [Suspect]
     Active Substance: DIMETHYL FUMARATE
     Dosage: STARTING DOSE
     Route: 050
  3. TECFIDERA [Suspect]
     Active Substance: DIMETHYL FUMARATE
     Route: 050
     Dates: start: 20150727, end: 20150916

REACTIONS (7)
  - Intentional product misuse [Not Recovered/Not Resolved]
  - Cataract [Recovered/Resolved]
  - Visual impairment [Unknown]
  - Memory impairment [Unknown]
  - Headache [Unknown]
  - Magnetic resonance imaging abnormal [Unknown]
  - Peripheral vascular disorder [Recovered/Resolved]

NARRATIVE: CASE EVENT DATE: 20220101
